FAERS Safety Report 10036060 (Version 1)
Quarter: 2014Q1

REPORT INFORMATION
  Report Type: Other
  Country: IT (occurrence: IT)
  Receive Date: 20140325
  Receipt Date: 20140325
  Transmission Date: 20141002
  Serious: Yes (Death, Hospitalization)
  Sender: FDA-Public Use
  Company Number: IT-US-EMD SERONO, INC.-7277412

PATIENT
  Sex: 0

DRUGS (1)
  1. SAIZEN [Suspect]
     Indication: GROWTH HORMONE DEFICIENCY
     Route: 058

REACTIONS (3)
  - Cardiac disorder [Fatal]
  - Cardiac failure chronic [Unknown]
  - Arthralgia [Unknown]
